FAERS Safety Report 5514762-3 (Version None)
Quarter: 2007Q4

REPORT INFORMATION
  Report Type: 
  Country: None (occurrence: None)
  Receive Date: 20071113
  Receipt Date: 20070921
  Transmission Date: 20080405
  Serious: Yes (Hospitalization)
  Sender: FDA-Public Use
  Company Number: CH-SANOFI-SYNTHELABO-D01200701346

PATIENT
  Sex: Female
  Weight: 58 kg

DRUGS (2)
  1. OXALIPLATIN [Suspect]
     Route: 042
     Dates: start: 20070227, end: 20070227
  2. AVE8062 [Suspect]
     Indication: NEOPLASM MALIGNANT
     Route: 042
     Dates: start: 20070227, end: 20070227

REACTIONS (1)
  - LARYNGOSPASM [None]
